FAERS Safety Report 10230457 (Version 2)
Quarter: 2014Q2

REPORT INFORMATION
  Report Type: Spontaneous
  Country: US (occurrence: US)
  Receive Date: 20140611
  Receipt Date: 20140611
  Transmission Date: 20141212
  Serious: No
  Sender: FDA-Public Use
  Company Number: US-INCYTE CORPORATION-2014IN000479

PATIENT
  Age: 68 Year
  Sex: Male
  Weight: 79.82 kg

DRUGS (11)
  1. JAKAFI [Suspect]
     Indication: MYELOFIBROSIS
     Dosage: 5 MG, QD
  2. JAKAFI [Suspect]
     Dosage: 15 MG, BID
     Route: 048
     Dates: start: 20140219
  3. ASPIRIN [Concomitant]
  4. FINASTERIDE [Concomitant]
  5. OMEGA 3                            /01334101/ [Concomitant]
  6. SAW PALMETTO                       /00833501/ [Concomitant]
  7. TERAZOSIN [Concomitant]
  8. BENICAR [Concomitant]
  9. FLUCONAZOLE [Concomitant]
  10. METOPROLOL [Concomitant]
  11. NEXIUM                             /01479302/ [Concomitant]

REACTIONS (6)
  - Abdominal discomfort [Unknown]
  - Sinusitis [Unknown]
  - Epistaxis [Unknown]
  - Increased appetite [Unknown]
  - Headache [Unknown]
  - Dizziness [Unknown]
